FAERS Safety Report 13158863 (Version 3)
Quarter: 2020Q1

REPORT INFORMATION
  Report Type: Report from Study
  Country: CO (occurrence: CO)
  Receive Date: 20170127
  Receipt Date: 20200225
  Transmission Date: 20200409
  Serious: No
  Sender: FDA-Public Use
  Company Number: CO-JNJFOC-20170122939

PATIENT
  Age: 53 Year
  Sex: Female
  Weight: 55 kg

DRUGS (3)
  1. STELARA [Suspect]
     Active Substance: USTEKINUMAB
     Dosage: STRENGTH: 45 MG/0.5ML; MOST RECENT ADMINISTRATION OF USTEKINUMAB WAS PERFORMED ON 30-JAN-2020
     Route: 058
     Dates: start: 20190730
  2. STELARA [Suspect]
     Active Substance: USTEKINUMAB
     Dosage: STRENGTH: 45 MG/0.5ML
     Route: 058
     Dates: start: 20190212, end: 20190212
  3. STELARA [Suspect]
     Active Substance: USTEKINUMAB
     Indication: PSORIASIS
     Dosage: STRENGTH: 45 MG/0.5ML
     Route: 058
     Dates: start: 20150304

REACTIONS (4)
  - Skin mass [Not Recovered/Not Resolved]
  - Rash [Not Recovered/Not Resolved]
  - Drug ineffective [Unknown]
  - Psoriasis [Unknown]

NARRATIVE: CASE EVENT DATE: 2017
